FAERS Safety Report 11674856 (Version 5)
Quarter: 2016Q2

REPORT INFORMATION
  Report Type: Report from Study
  Country: US (occurrence: US)
  Receive Date: 20151028
  Receipt Date: 20160630
  Transmission Date: 20160815
  Serious: Yes (Hospitalization, Other)
  Sender: FDA-Public Use
  Company Number: US-BAYER-2015-391551

PATIENT
  Age: 87 Year
  Sex: Female
  Weight: 54.88 kg

DRUGS (7)
  1. ADEMPAS [Suspect]
     Active Substance: RIOCIGUAT
     Indication: PULMONARY ARTERIAL HYPERTENSION
     Dosage: 0.5 MG, TID
     Route: 048
     Dates: start: 20150714
  2. ADEMPAS [Suspect]
     Active Substance: RIOCIGUAT
     Indication: PULMONARY ARTERIAL HYPERTENSION
     Dosage: 1 MG, TID
     Route: 048
  3. ADEMPAS [Suspect]
     Active Substance: RIOCIGUAT
     Indication: PULMONARY ARTERIAL HYPERTENSION
     Dosage: 0.5 MG, TID
     Route: 048
  4. ADEMPAS [Suspect]
     Active Substance: RIOCIGUAT
     Indication: PULMONARY ARTERIAL HYPERTENSION
     Dosage: 0.5 MG, TID
     Route: 048
  5. ADEMPAS [Suspect]
     Active Substance: RIOCIGUAT
     Indication: PULMONARY ARTERIAL HYPERTENSION
     Dosage: 0.5 MG, TID
     Route: 048
  6. WARFARIN [Concomitant]
     Active Substance: WARFARIN
     Dosage: UNK
  7. COUMADIN [Concomitant]
     Active Substance: WARFARIN SODIUM
     Dosage: UNK

REACTIONS (24)
  - Fall [None]
  - Hypotension [Unknown]
  - Blood pressure decreased [Recovered/Resolved]
  - Tremor [None]
  - Pulmonary arterial hypertension [None]
  - Contusion [Unknown]
  - Diarrhoea [Recovered/Resolved]
  - Muscular weakness [Unknown]
  - International normalised ratio increased [None]
  - Fall [Unknown]
  - Loss of consciousness [Unknown]
  - Laceration [Unknown]
  - Dizziness [Recovered/Resolved]
  - Insomnia [Unknown]
  - Echocardiogram abnormal [Unknown]
  - Peripheral swelling [None]
  - Renal impairment [Recovered/Resolved]
  - Mucous stools [Unknown]
  - Hypotension [None]
  - Subcutaneous haematoma [Recovering/Resolving]
  - Gait disturbance [None]
  - Asthenia [None]
  - Ear injury [None]
  - Gait disturbance [None]

NARRATIVE: CASE EVENT DATE: 201502
